FAERS Safety Report 21289032 (Version 1)
Quarter: 2022Q3

REPORT INFORMATION
  Report Type: Spontaneous
  Country: US (occurrence: US)
  Receive Date: 20220902
  Receipt Date: 20220902
  Transmission Date: 20221026
  Serious: No
  Sender: FDA-Public Use
  Company Number: US-ABBVIE-22K-163-4381005-00

PATIENT
  Sex: Male
  Weight: 102.60 kg

DRUGS (1)
  1. VENCLEXTA [Suspect]
     Active Substance: VENETOCLAX
     Indication: Hodgkin^s disease
     Route: 048
     Dates: start: 2020, end: 202204

REACTIONS (1)
  - Off label use [Unknown]
